FAERS Safety Report 4780398-5 (Version None)
Quarter: 2005Q3

REPORT INFORMATION
  Report Type: 
  Country: None (occurrence: None)
  Receive Date: 20050926
  Receipt Date: 20050926
  Transmission Date: 20060218
  Serious: Yes (Life-Threatening)
  Sender: FDA-Public Use
  Company Number: None

PATIENT
  Age: 46 Year
  Sex: Female
  Weight: 63.5036 kg

DRUGS (4)
  1. IMITREX [Suspect]
     Indication: MIGRAINE
     Dosage: 50MG ONCE PO
     Route: 048
     Dates: start: 20050814, end: 20050814
  2. IMITREX [Suspect]
     Indication: MIGRAINE
     Dosage: 50MG 2X1; IN 2H, 1X1 PO
     Route: 048
     Dates: start: 20050824, end: 20050824
  3. TOFRANIL [Concomitant]
  4. ZOLOFT [Concomitant]

REACTIONS (8)
  - DEPRESSION [None]
  - INCORRECT DOSE ADMINISTERED [None]
  - INTENTIONAL MISUSE [None]
  - MOOD ALTERED [None]
  - OBSESSIVE THOUGHTS [None]
  - SUICIDAL IDEATION [None]
  - SUICIDE ATTEMPT [None]
  - THINKING ABNORMAL [None]
